FAERS Safety Report 5650319-1 (Version None)
Quarter: 2008Q1

REPORT INFORMATION
  Report Type: 
  Country: None (occurrence: None)
  Receive Date: 20080304
  Receipt Date: 20080304
  Transmission Date: 20080703
  Serious: Yes (Life-Threatening, Hospitalization)
  Sender: FDA-Public Use
  Company Number: None

PATIENT
  Age: 82 Year
  Sex: Female
  Weight: 47 kg

DRUGS (22)
  1. MORPHINE [Suspect]
     Indication: POSTOPERATIVE ANALGESIA
     Dosage: 1MG EVERY 15 MINUTES IV
     Route: 042
     Dates: start: 20070510, end: 20070510
  2. METHOCARBAMOL [Suspect]
     Indication: POSTOPERATIVE ANALGESIA
     Dosage: 750MG  EVERY 8 HOURS  PO
     Route: 048
     Dates: start: 20070510, end: 20070515
  3. SINEMET [Concomitant]
  4. OSCAL D [Concomitant]
  5. ENTACAPONE [Concomitant]
  6. RAZADYNE ER [Concomitant]
  7. FOLTX [Concomitant]
  8. MELOXICAM [Concomitant]
  9. DOCUSATE SODIUM [Concomitant]
  10. SENNA [Concomitant]
  11. DARVOCET-N 100 [Concomitant]
  12. ZOFRAN [Concomitant]
  13. AZILECT [Concomitant]
  14. METOPROLOL TARTRATE [Concomitant]
  15. METOCLOPRAMIDE [Concomitant]
  16. MOM [Concomitant]
  17. PEPCID [Concomitant]
  18. ASCORBIC ACID [Concomitant]
  19. FERGON [Concomitant]
  20. HEPARIN [Concomitant]
  21. CEFAZOLIN [Concomitant]
  22. GENTAMICIN [Concomitant]

REACTIONS (12)
  - AGITATION [None]
  - APNOEA [None]
  - ARTHRALGIA [None]
  - BLOOD PRESSURE SYSTOLIC INCREASED [None]
  - FALL [None]
  - FEMORAL NECK FRACTURE [None]
  - HYPOTENSION [None]
  - HYPOXIA [None]
  - MIOSIS [None]
  - OVERDOSE [None]
  - RESPIRATORY RATE DECREASED [None]
  - UNRESPONSIVE TO STIMULI [None]
